FAERS Safety Report 9806953 (Version 4)
Quarter: 2014Q2

REPORT INFORMATION
  Report Type: Spontaneous
  Country: US (occurrence: US)
  Receive Date: 20140109
  Receipt Date: 20140604
  Transmission Date: 20141212
  Serious: No
  Sender: FDA-Public Use
  Company Number: US-009507513-1202USA00565

PATIENT
  Sex: Male

DRUGS (3)
  1. PROPECIA [Suspect]
     Indication: ANDROGENETIC ALOPECIA
     Dosage: 1 MG, UNK
     Route: 048
     Dates: start: 199710, end: 2000
  2. PROSCAR [Suspect]
     Indication: ANDROGENETIC ALOPECIA
     Dosage: UNK
     Route: 048
  3. FINASTERIDE [Suspect]
     Indication: ANDROGENETIC ALOPECIA
     Route: 048

REACTIONS (13)
  - Anxiety [Not Recovered/Not Resolved]
  - Cognitive disorder [Not Recovered/Not Resolved]
  - Flat affect [Not Recovered/Not Resolved]
  - Fibrous histiocytoma [Unknown]
  - Hyperhidrosis [Unknown]
  - Rash vesicular [Unknown]
  - Acne [Unknown]
  - Miliaria [Unknown]
  - Loss of libido [Unknown]
  - Erectile dysfunction [Not Recovered/Not Resolved]
  - Semen volume decreased [Unknown]
  - Depression [Not Recovered/Not Resolved]
  - Off label use [Unknown]
